FAERS Safety Report 7816525-2 (Version None)
Quarter: 2011Q4

REPORT INFORMATION
  Report Type: 
  Country: None (occurrence: None)
  Receive Date: 20111017
  Receipt Date: 20111005
  Transmission Date: 20120403
  Serious: Yes (Other)
  Sender: FDA-Public Use
  Company Number: GB-JNJFOC-20111002330

PATIENT
  Age: 3 Decade
  Sex: Male

DRUGS (2)
  1. RISPERDAL CONSTA [Suspect]
     Indication: SCHIZOPHRENIA, PARANOID TYPE
     Route: 030
     Dates: start: 20101001
  2. RISPERDAL CONSTA [Suspect]
     Route: 030
     Dates: end: 20101001

REACTIONS (2)
  - SCHIZOPHRENIA, PARANOID TYPE [None]
  - GENERAL PHYSICAL HEALTH DETERIORATION [None]
